FAERS Safety Report 23745929 (Version 1)
Quarter: 2024Q2

REPORT INFORMATION
  Report Type: Spontaneous
  Country: BR (occurrence: BR)
  Receive Date: 20240416
  Receipt Date: 20240416
  Transmission Date: 20240716
  Serious: Yes (Other)
  Sender: FDA-Public Use
  Company Number: BR-CHEPLA-2024004603

PATIENT
  Sex: Female
  Weight: 72 kg

DRUGS (8)
  1. CLONAZEPAM [Suspect]
     Active Substance: CLONAZEPAM
     Indication: Panic disorder
     Dosage: RIVOTRIL 0.5 MG/ EVERY NIGHT?DAILY DOSE: 1 DOSAGE FORM
     Route: 048
     Dates: start: 2004, end: 2004
  2. CLONAZEPAM [Suspect]
     Active Substance: CLONAZEPAM
     Indication: Panic disorder
     Dosage: RIVOTRIL 0.5 MG/BID ?DAILY DOSE: 2 DOSAGE FORM
     Route: 048
     Dates: start: 2004, end: 202402
  3. CLONAZEPAM [Suspect]
     Active Substance: CLONAZEPAM
     Indication: Panic disorder
     Dosage: RIVOTRIL 0.25 MG/ TWICE A DAY?DAILY DOSE: 2 DOSAGE FORM
     Route: 060
     Dates: start: 2018, end: 2018
  4. CLONAZEPAM [Suspect]
     Active Substance: CLONAZEPAM
     Indication: Panic disorder
     Dosage: RIVOTRIL 2 MG/ EVERY NIGHT?DAILY DOSE: 0.25 DOSAGE FORM
     Route: 048
     Dates: start: 2022, end: 2022
  5. FLUOXETINE [Concomitant]
     Active Substance: FLUOXETINE HYDROCHLORIDE
     Indication: Drug intolerance
     Dosage: EVERY NIGHT?DAILY DOSE: 1 DOSAGE FORM
     Route: 048
     Dates: start: 2004, end: 2004
  6. FLUOXETINE [Concomitant]
     Active Substance: FLUOXETINE HYDROCHLORIDE
     Indication: Panic disorder
     Dosage: EVERY NIGHT?DAILY DOSE: 1 DOSAGE FORM
     Route: 048
     Dates: start: 2004, end: 2004
  7. PAROXETINE [Concomitant]
     Active Substance: PAROXETINE
     Indication: Panic disorder
     Dosage: DAILY FOR 5 MONTHS TOGETHER WITH RIVOTRIL.?STARTED A FEW YEARS AGO^?DAILY DOSE: 1 DOSAGE FORM
     Route: 048
  8. CLONAZEPAM [Concomitant]
     Active Substance: CLONAZEPAM
     Indication: Drug withdrawal syndrome

REACTIONS (19)
  - Drug dependence [Not Recovered/Not Resolved]
  - Arrhythmia [Recovered/Resolved]
  - Malaise [Recovered/Resolved]
  - Drug ineffective [Recovered/Resolved]
  - Head discomfort [Recovered/Resolved]
  - Nausea [Recovered/Resolved]
  - Tremor [Recovered/Resolved]
  - Heart rate increased [Recovered/Resolved]
  - Product prescribing error [Recovered/Resolved]
  - Prescription drug used without a prescription [Recovered/Resolved]
  - Therapy interrupted [Recovered/Resolved]
  - Palpitations [Recovered/Resolved]
  - Tremor [Recovered/Resolved]
  - Palpitations [Recovered/Resolved]
  - Dyspnoea [Recovered/Resolved]
  - Withdrawal syndrome [Recovered/Resolved]
  - Gastritis [Not Recovered/Not Resolved]
  - Gastrooesophageal reflux disease [Not Recovered/Not Resolved]
  - Therapeutic response unexpected [Unknown]

NARRATIVE: CASE EVENT DATE: 20180101
